FAERS Safety Report 4309680-2 (Version None)
Quarter: 2004Q1

REPORT INFORMATION
  Report Type: 
  Country: None (occurrence: None)
  Receive Date: 20040301
  Receipt Date: 20040223
  Transmission Date: 20041129
  Serious: Yes (Death, Hospitalization, Other)
  Sender: FDA-Public Use
  Company Number: 200308624

PATIENT
  Age: 79 Year
  Sex: Female
  Weight: 52 kg

DRUGS (8)
  1. PARACETAMOL PRODUCT (PARACETAMOL) [Suspect]
     Dosage: ^AROUND 40^ TABLETS PO
     Route: 048
     Dates: start: 20030706, end: 20030706
  2. OXYGEN [Concomitant]
  3. MEDICATION FOR PAIN RELIEF [Concomitant]
  4. NEBULIZER [Concomitant]
  5. TRAZODONE HCL [Concomitant]
  6. AMILOFRUSE [Concomitant]
  7. CARBAMAZEPINE [Concomitant]
  8. CO-CODAMOL (PARACETAMOL/CODEINE) [Concomitant]

REACTIONS (4)
  - DEPRESSED LEVEL OF CONSCIOUSNESS [None]
  - DRUG TOXICITY [None]
  - GENERAL PHYSICAL HEALTH DETERIORATION [None]
  - INTENTIONAL OVERDOSE [None]
